FAERS Safety Report 16156613 (Version 1)
Quarter: 2019Q2

REPORT INFORMATION
  Report Type: Report from Study
  Country: US (occurrence: US)
  Receive Date: 20190404
  Receipt Date: 20190404
  Transmission Date: 20190711
  Serious: Yes (Hospitalization)
  Sender: FDA-Public Use
  Company Number: US-TESAROUBC-2018-TSO2304-US

PATIENT
  Sex: Female

DRUGS (6)
  1. ZEJULA [Suspect]
     Active Substance: NIRAPARIB
     Indication: OVARIAN CANCER
     Dosage: 300 MG, QD
     Dates: start: 20181031, end: 20181110
  2. GABAPENTIN. [Concomitant]
     Active Substance: GABAPENTIN
     Indication: PRODUCT USED FOR UNKNOWN INDICATION
  3. KEPPRA [Concomitant]
     Active Substance: LEVETIRACETAM
     Indication: PRODUCT USED FOR UNKNOWN INDICATION
     Dosage: UNK
  4. NEURONTIN [Concomitant]
     Active Substance: GABAPENTIN
     Indication: PRODUCT USED FOR UNKNOWN INDICATION
     Dosage: UNK
  5. ZEJULA [Suspect]
     Active Substance: NIRAPARIB
     Dosage: 100 MG, QD
     Route: 065
     Dates: start: 20181110, end: 20181203
  6. ZEJULA [Suspect]
     Active Substance: NIRAPARIB
     Dosage: 200 MG, QPM WITHOUT FOOD
     Route: 048
     Dates: start: 20181203

REACTIONS (12)
  - Gingivitis [Unknown]
  - Fall [Unknown]
  - Hypoaesthesia [Unknown]
  - Thirst decreased [Unknown]
  - Chronic cheek biting [Unknown]
  - Constipation [Unknown]
  - Discomfort [Recovering/Resolving]
  - Unevaluable event [Recovering/Resolving]
  - Tongue biting [Unknown]
  - Feeling abnormal [Unknown]
  - Dry mouth [Unknown]
  - Seizure [Unknown]

NARRATIVE: CASE EVENT DATE: 2018
